FAERS Safety Report 7171389-8 (Version None)
Quarter: 2010Q4

REPORT INFORMATION
  Report Type: 
  Country: None (occurrence: None)
  Receive Date: 20101217
  Receipt Date: 20101213
  Transmission Date: 20110411
  Serious: Yes (Death, Other)
  Sender: FDA-Public Use
  Company Number: JP-PFIZER INC-2010161935

PATIENT
  Age: 79 Year
  Sex: Male
  Weight: 66.7 kg

DRUGS (10)
  1. ZYVOX [Suspect]
     Indication: STAPHYLOCOCCAL INFECTION
     Dosage: 600 MG, 2X/DAY
     Route: 041
     Dates: start: 20101114, end: 20101116
  2. ZYVOX [Suspect]
     Indication: SEPSIS
     Dosage: 600 MG, 2X/DAY
     Route: 041
     Dates: start: 20101117, end: 20101125
  3. CEFEPIME HYDROCHLORIDE [Concomitant]
     Indication: INFECTION
     Dosage: 1 G, 4X/DAY
     Route: 041
     Dates: start: 20101111, end: 20101116
  4. ISEPAMICIN SULFATE [Concomitant]
     Indication: INFECTION
     Dosage: 400 MG, 1X/DAY
     Route: 041
     Dates: start: 20101112, end: 20101116
  5. MICAFUNGIN [Concomitant]
     Indication: INFECTION
     Dosage: 150 MG, 1X/DAY
     Route: 041
     Dates: start: 20101115, end: 20101204
  6. MEROPENEM [Concomitant]
     Indication: INFECTION
     Dosage: 0.5 G, 4X/DAY
     Route: 041
     Dates: start: 20101117, end: 20101201
  7. FENTANYL [Concomitant]
     Indication: ANALGESIC THERAPY
     Dosage: 40MICROG/HR
     Route: 041
     Dates: start: 20101113, end: 20101122
  8. FUTHAN [Concomitant]
     Indication: CONTINUOUS HAEMODIAFILTRATION
     Dosage: 20MG/HR
     Route: 041
     Dates: start: 20101115, end: 20101203
  9. ANTHROBIN P [Concomitant]
     Indication: DISSEMINATED INTRAVASCULAR COAGULATION
     Dosage: 1500UNITS TWICE DAILY
     Route: 041
     Dates: start: 20101113, end: 20101124
  10. ANTHROBIN P [Concomitant]
     Dosage: 1500UNITS ONCE DAILY
     Route: 041
     Dates: start: 20101125, end: 20101129

REACTIONS (2)
  - MULTI-ORGAN FAILURE [None]
  - PANCYTOPENIA [None]
